FAERS Safety Report 6647341-5 (Version None)
Quarter: 2010Q1

REPORT INFORMATION
  Report Type: 
  Country: None (occurrence: None)
  Receive Date: 20100323
  Receipt Date: 20100319
  Transmission Date: 20100710
  Serious: Yes (Disabling)
  Sender: FDA-Public Use
  Company Number: B0641325A

PATIENT
  Sex: Female

DRUGS (2)
  1. MALARONE [Suspect]
     Indication: MALARIA PROPHYLAXIS
     Route: 048
     Dates: start: 20090701, end: 20090101
  2. MALOXINE [Suspect]
     Indication: MALARIA PROPHYLAXIS
     Route: 048
     Dates: start: 20090701, end: 20090701

REACTIONS (12)
  - CHROMATURIA [None]
  - COAGULATION FACTOR V LEVEL DECREASED [None]
  - COUGH [None]
  - HEPATIC ENCEPHALOPATHY [None]
  - HEPATITIS ACUTE [None]
  - HEPATOCELLULAR INJURY [None]
  - INAPPROPRIATE SCHEDULE OF DRUG ADMINISTRATION [None]
  - OCULAR ICTERUS [None]
  - PROTHROMBIN TIME SHORTENED [None]
  - PYREXIA [None]
  - RHINITIS [None]
  - VOMITING [None]
